FAERS Safety Report 4710713-X (Version None)
Quarter: 2005Q3

REPORT INFORMATION
  Report Type: 
  Country: None (occurrence: None)
  Receive Date: 20050707
  Receipt Date: 20050617
  Transmission Date: 20060218
  Serious: No
  Sender: FDA-Public Use
  Company Number: DE_050616248

PATIENT
  Age: 8 Year
  Sex: Male

DRUGS (3)
  1. STRATTERA [Suspect]
     Indication: ATTENTION DEFICIT/HYPERACTIVITY DISORDER
     Dosage: 25MG/1 DAY
     Dates: start: 20050519
  2. PENICILLIN (PENOXYMETHYLPENICILLIN BENZATHINE) [Concomitant]
  3. ACETAMINOPHEN [Concomitant]

REACTIONS (4)
  - AGGRESSION [None]
  - ASPARTATE AMINOTRANSFERASE INCREASED [None]
  - DYSPHORIA [None]
  - PHARYNGITIS BACTERIAL [None]
